FAERS Safety Report 5158559-5 (Version None)
Quarter: 2006Q4

REPORT INFORMATION
  Report Type: 
  Country: None (occurrence: None)
  Receive Date: 20061128
  Receipt Date: 20061115
  Transmission Date: 20070319
  Serious: Yes (Death)
  Sender: FDA-Public Use
  Company Number: US-NOVOPROD-258586

PATIENT
  Age: 65 Year
  Sex: Male
  Weight: 100 kg

DRUGS (4)
  1. NOVOSEVEN [Suspect]
     Indication: CATHETER SITE HAEMORRHAGE
     Dosage: 2.4 MG, SINGLE
     Route: 042
     Dates: start: 20060703, end: 20060703
  2. RED BLOOD CELLS [Concomitant]
     Indication: CATHETER SITE HAEMORRHAGE
     Dosage: 15 U, UNK
     Route: 042
  3. PLATELETS [Concomitant]
     Indication: CATHETER SITE HAEMORRHAGE
     Dosage: 2 U, UNK
  4. FRESH FROZEN PLASMA [Concomitant]
     Indication: CATHETER SITE HAEMORRHAGE
     Dosage: 6 U, UNK

REACTIONS (1)
  - CONCOMITANT DISEASE PROGRESSION [None]
